FAERS Safety Report 7682122-5 (Version None)
Quarter: 2011Q3

REPORT INFORMATION
  Report Type: 
  Country: None (occurrence: None)
  Receive Date: 20110804
  Receipt Date: 20110728
  Transmission Date: 20111222
  Serious: Yes (Life-Threatening, Hospitalization)
  Sender: FDA-Public Use
  Company Number: 2011SP035464

PATIENT
  Age: 78 Year
  Sex: Female

DRUGS (7)
  1. TEMOZOLOMIDE [Suspect]
     Indication: GLIOBLASTOMA
     Dosage: 140 MG; QD; PO
     Route: 048
     Dates: start: 20101116
  2. ASPIRIN [Concomitant]
  3. MOVIPREP [Concomitant]
  4. DEXAMETHASONE [Concomitant]
  5. PANTOPRAZOLE [Concomitant]
  6. ZOFRAN [Concomitant]
  7. BELOK ZOK MITE [Concomitant]

REACTIONS (2)
  - PULMONARY EMBOLISM [None]
  - OEDEMA PERIPHERAL [None]
